FAERS Safety Report 5912546-5 (Version None)
Quarter: 2008Q4

REPORT INFORMATION
  Report Type: 
  Country: None (occurrence: None)
  Receive Date: 20081008
  Receipt Date: 20081002
  Transmission Date: 20090506
  Serious: Yes (Hospitalization)
  Sender: FDA-Public Use
  Company Number: FR-BRISTOL-MYERS SQUIBB COMPANY-14360879

PATIENT
  Age: 70 Year
  Sex: Male

DRUGS (7)
  1. ERBITUX [Suspect]
     Indication: COLORECTAL CANCER METASTATIC
     Route: 042
     Dates: start: 20080101, end: 20080703
  2. IRINOTECAN HCL [Suspect]
     Indication: COLORECTAL CANCER METASTATIC
     Dosage: SOLN FOR INJ.PREVIOUSLY RECEIVED 13 COURSES JUL07-JAN08+AGAIN RECEIVED 13 COURSES JAN08-03JUL08
     Route: 042
     Dates: start: 20070701, end: 20080703
  3. FLUOROURACIL [Suspect]
     Indication: COLORECTAL CANCER METASTATIC
     Dosage: SOLN FOR INJ. PREVIOUSLY RECEIVED 13 COURSES JUL07-JAN08+AGAIN RECEIVED 13 COURSES JAN08-03JUL08
     Route: 042
     Dates: start: 20070701, end: 20080703
  4. ATENOLOL [Concomitant]
  5. FELODIPINE [Concomitant]
     Dosage: FORM = TABS
     Route: 048
  6. HYZAAR [Concomitant]
     Dosage: FORM = TABS
     Route: 048
  7. LEUCOVORIN CALCIUM [Concomitant]
     Indication: COLORECTAL CANCER METASTATIC
     Dosage: PREVIOUSLY RECEIVED 13 COURSES FROM JUL07-JAN08 AND AGAIN RECEIVED 13 COURSES FROM JAN08-03JUL08
     Dates: start: 20070701, end: 20080703

REACTIONS (4)
  - ABDOMINAL PAIN [None]
  - ALOPECIA [None]
  - BACK PAIN [None]
  - DIARRHOEA HAEMORRHAGIC [None]
